FAERS Safety Report 15323371 (Version 1)
Quarter: 2018Q3

REPORT INFORMATION
  Report Type: Spontaneous
  Country: NZ (occurrence: NZ)
  Receive Date: 20180827
  Receipt Date: 20180827
  Transmission Date: 20181010
  Serious: Yes (Hospitalization, Other)
  Sender: FDA-Public Use
  Company Number: NZ-ELI_LILLY_AND_COMPANY-NZ201808009520

PATIENT

DRUGS (1)
  1. ZYPREXA RELPREVV [Suspect]
     Active Substance: OLANZAPINE PAMOATE
     Indication: PRODUCT USED FOR UNKNOWN INDICATION
     Dosage: 405 MG, 2/M
     Route: 030

REACTIONS (9)
  - Post-injection delirium sedation syndrome [Unknown]
  - Prescribed overdose [Unknown]
  - Wheezing [Unknown]
  - Ataxia [Unknown]
  - Confusional state [Unknown]
  - Sinus tachycardia [Unknown]
  - Dysarthria [Unknown]
  - Extrapyramidal disorder [Unknown]
  - Somnolence [Unknown]

NARRATIVE: CASE EVENT DATE: 201808
